FAERS Safety Report 8734373 (Version 2)
Quarter: 2013Q3

REPORT INFORMATION
  Report Type: Spontaneous
  Country: US (occurrence: US)
  Receive Date: 20120821
  Receipt Date: 20130911
  Transmission Date: 20140515
  Serious: No
  Sender: FDA-Public Use
  Company Number: US-ASTRAZENECA-2012SE57418

PATIENT
  Age: 14894 Day
  Sex: Female
  Weight: 54.4 kg

DRUGS (2)
  1. NEXIUM [Suspect]
     Indication: GASTROOESOPHAGEAL REFLUX DISEASE
     Route: 048
     Dates: start: 2012
  2. UNSPECIFIED [Concomitant]

REACTIONS (4)
  - Gastrooesophageal reflux disease [Not Recovered/Not Resolved]
  - Abdominal pain upper [Unknown]
  - Discomfort [Not Recovered/Not Resolved]
  - Drug dose omission [Unknown]
